FAERS Safety Report 6834817-0 (Version None)
Quarter: 2010Q3

REPORT INFORMATION
  Report Type: 
  Country: None (occurrence: None)
  Receive Date: 20100712
  Receipt Date: 20070423
  Transmission Date: 20110219
  Serious: No
  Sender: FDA-Public Use
  Company Number: US-PFIZER INC-2007034017

PATIENT
  Sex: Female
  Weight: 63.636 kg

DRUGS (5)
  1. CHANTIX [Suspect]
     Indication: SMOKING CESSATION THERAPY
     Dates: start: 20070422
  2. TOPROL-XL [Concomitant]
  3. VYTORIN [Concomitant]
  4. MELLARIL [Concomitant]
  5. ELAVIL [Concomitant]

REACTIONS (1)
  - DIZZINESS [None]
